FAERS Safety Report 12312675 (Version 5)
Quarter: 2017Q1

REPORT INFORMATION
  Report Type: Report from Study
  Country: PL (occurrence: PL)
  Receive Date: 20160428
  Receipt Date: 20170331
  Transmission Date: 20170428
  Serious: Yes (Hospitalization)
  Sender: FDA-Public Use
  Company Number: PL-ROCHE-1747192

PATIENT
  Age: 68 Year
  Sex: Male
  Weight: 93 kg

DRUGS (19)
  1. ALLOPURINOL. [Concomitant]
     Active Substance: ALLOPURINOL
     Route: 048
     Dates: start: 20160421, end: 20160624
  2. HYDROCORTISON [Concomitant]
     Active Substance: HYDROCORTISONE
     Indication: HYPOTONIA
     Route: 042
     Dates: start: 20160421, end: 20160421
  3. MEPRELON [Concomitant]
     Indication: PREMEDICATION
     Route: 042
     Dates: start: 20160421, end: 20160421
  4. CLEMASTINUM [Concomitant]
     Active Substance: CLEMASTINE FUMARATE
     Indication: PREMEDICATION
     Route: 042
     Dates: start: 20160421, end: 20160421
  5. NACL .9% [Concomitant]
     Indication: PROPHYLAXIS
     Route: 042
     Dates: start: 20160421, end: 20160421
  6. FUROSEMID [Concomitant]
     Active Substance: FUROSEMIDE
     Indication: PROPHYLAXIS
     Route: 042
     Dates: start: 20160421, end: 20160421
  7. ALLOPURINOL. [Concomitant]
     Active Substance: ALLOPURINOL
     Indication: PROPHYLAXIS
     Route: 048
     Dates: start: 20160420
  8. ACARD [Concomitant]
     Active Substance: ASPIRIN
     Indication: CEREBROVASCULAR DISORDER
     Route: 048
     Dates: start: 2007
  9. HEVIRAN [Concomitant]
     Active Substance: ACYCLOVIR
     Indication: INFECTION PROPHYLAXIS
     Route: 048
     Dates: start: 20160421, end: 20161013
  10. TAZOCIN [Concomitant]
     Active Substance: PIPERACILLIN SODIUM\TAZOBACTAM SODIUM
     Indication: UPPER RESPIRATORY TRACT INFECTION
     Route: 042
     Dates: start: 20160422, end: 20160425
  11. BISEPTOL [Concomitant]
     Active Substance: SULFAMETHOXAZOLE\TRIMETHOPRIM
     Indication: INFECTION PROPHYLAXIS
     Route: 048
     Dates: start: 20160421, end: 20161013
  12. VASILIP [Concomitant]
     Active Substance: SIMVASTATIN
     Indication: HYPERCHOLESTEROLAEMIA
     Route: 048
     Dates: start: 2007
  13. TAZOCIN [Concomitant]
     Active Substance: PIPERACILLIN SODIUM\TAZOBACTAM SODIUM
     Indication: PYREXIA
  14. OBINUTUZUMAB [Suspect]
     Active Substance: OBINUTUZUMAB
     Indication: CHRONIC LYMPHOCYTIC LEUKAEMIA
     Dosage: DATE OF MOST RECENT DOSE: 21/APR/2016, DOSE OF LAST OBINUTUZUMAB ADMINISTERED: 100MG
     Route: 042
     Dates: start: 20160421
  15. CHLORAMBUCIL [Suspect]
     Active Substance: CHLORAMBUCIL
     Indication: CHRONIC LYMPHOCYTIC LEUKAEMIA
     Dosage: DATE OF MOST RECENT DOSE: 21/APR/2016, DOSE OF LAST CHLORAMBUCIL ADMINISTERED: 46MG (17:00)
     Route: 048
     Dates: start: 20160421
  16. METFORMAX [Concomitant]
     Active Substance: METFORMIN HYDROCHLORIDE
     Indication: DIABETES MELLITUS
     Route: 048
     Dates: start: 2007
  17. VICEBROL [Concomitant]
     Active Substance: VINPOCETINE
     Indication: CEREBROVASCULAR DISORDER
     Route: 048
     Dates: start: 2007
  18. PARACETAMOLUM [Concomitant]
     Active Substance: ACETAMINOPHEN
     Indication: PREMEDICATION
     Route: 048
     Dates: start: 20160421, end: 20160421
  19. PYRALGIN (POLAND) [Concomitant]
     Indication: HYPOTONIA
     Route: 042
     Dates: start: 20160421, end: 20160421

REACTIONS (1)
  - Aspartate aminotransferase increased [Recovered/Resolved]

NARRATIVE: CASE EVENT DATE: 20160422
